FAERS Safety Report 8042870-4 (Version None)
Quarter: 2012Q1

REPORT INFORMATION
  Report Type: 
  Country: None (occurrence: None)
  Receive Date: 20120112
  Receipt Date: 20120104
  Transmission Date: 20120608
  Serious: Yes (Other)
  Sender: FDA-Public Use
  Company Number: CA-UCBSA-047075

PATIENT
  Age: 56 Year
  Sex: Female
  Weight: 55 kg

DRUGS (12)
  1. FLU SHOT [Concomitant]
     Dates: start: 20111024
  2. MYLAN- SERTALINE [Concomitant]
     Indication: DEPRESSION
     Route: 048
     Dates: start: 20110701
  3. MTV [Concomitant]
     Indication: PROPHYLAXIS
     Dosage: UNKNOWN DOSE ONCE DAILY
     Route: 048
  4. CIMZIA [Suspect]
     Indication: RHEUMATOID ARTHRITIS
     Route: 058
     Dates: start: 20110525, end: 20111227
  5. FISH OIL [Concomitant]
     Indication: PROPHYLAXIS
  6. SYNTHROID [Concomitant]
     Indication: HYPOTHYROIDISM
     Route: 048
  7. AMOXICILLIN [Concomitant]
     Indication: URINARY TRACT INFECTION
     Dosage: X 10 DAYS
     Route: 048
     Dates: start: 20111213
  8. CRESTOR [Concomitant]
     Indication: BLOOD CHOLESTEROL INCREASED
     Dosage: 10 MG ONCE AT BEDTIME
     Route: 048
  9. PREDNISOLONE [Concomitant]
     Indication: RHEUMATOID ARTHRITIS
  10. ARTHROTEC [Concomitant]
     Indication: OSTEOARTHRITIS
     Dosage: UNKNOWN DOSE TWICE IN A DAY
     Route: 048
     Dates: start: 20111201
  11. PMS- ZOPLICONE [Concomitant]
     Indication: INSOMNIA
     Dosage: 3.75 TO 7.5 MG ONCE AT BEDTIME
     Route: 048
     Dates: start: 20111101
  12. TWINRIX [Concomitant]
     Dates: start: 20111123

REACTIONS (7)
  - SYSTEMIC LUPUS ERYTHEMATOSUS [None]
  - MALAISE [None]
  - URINARY TRACT INFECTION [None]
  - ORAL PAIN [None]
  - RHEUMATOID ARTHRITIS [None]
  - GINGIVAL PAIN [None]
  - PYREXIA [None]
